FAERS Safety Report 17575417 (Version 1)
Quarter: 2020Q1

REPORT INFORMATION
  Report Type: Spontaneous
  Country: US (occurrence: US)
  Receive Date: 20200324
  Receipt Date: 20200324
  Transmission Date: 20200409
  Serious: Yes (Other)
  Sender: FDA-Public Use
  Company Number: US-GLAXOSMITHKLINE-US2020050232

PATIENT
  Sex: Female

DRUGS (1)
  1. ARNUITY ELLIPTA [Suspect]
     Active Substance: FLUTICASONE FUROATE
     Indication: PRODUCT USED FOR UNKNOWN INDICATION
     Dosage: UNK
     Route: 065

REACTIONS (8)
  - Chills [Unknown]
  - Stent placement [Unknown]
  - Hypertension [Unknown]
  - Malaise [Unknown]
  - Feeling abnormal [Unknown]
  - Diabetes mellitus [Unknown]
  - Dizziness [Unknown]
  - Wrong technique in device usage process [Unknown]
